FAERS Safety Report 4754800-9 (Version None)
Quarter: 2005Q3

REPORT INFORMATION
  Report Type: 
  Country: None (occurrence: None)
  Receive Date: 20050825
  Receipt Date: 20050811
  Transmission Date: 20060218
  Serious: Yes (Hospitalization, Other)
  Sender: FDA-Public Use
  Company Number: 2005-02956

PATIENT
  Age: 46 Year
  Sex: Female

DRUGS (6)
  1. LOXITANE C [Suspect]
     Indication: AGITATION
     Dosage: 50 MG DAILY, ORAL
     Route: 048
     Dates: start: 20050706, end: 20050707
  2. LOXITANE C [Suspect]
     Indication: SUICIDAL IDEATION
     Dosage: 50 MG DAILY, ORAL
     Route: 048
     Dates: start: 20050706, end: 20050707
  3. CLONAZEPAM (WATSON LABORATORIES) (CLONAZEPAM, CLONAZEPAM) TABLET [Suspect]
     Indication: SUICIDE ATTEMPT
     Dosage: 50 MG, SINGLE, ORAL
     Route: 048
     Dates: start: 20050705, end: 20050705
  4. DEPAKENE [Suspect]
     Indication: SUICIDE ATTEMPT
     Dosage: 20 G, SINGLE, ORAL
     Route: 048
     Dates: start: 20050705, end: 20050705
  5. URBANYL (CLOBAZAM) [Suspect]
     Indication: SUICIDE ATTEMPT
     Dosage: SINGLE, ORAL
     Route: 048
     Dates: start: 20050705, end: 20050705
  6. PRAZEPAM [Concomitant]

REACTIONS (11)
  - AGITATION [None]
  - BLOOD PRESSURE INCREASED [None]
  - BRADYPHRENIA [None]
  - HYPOTONIA [None]
  - INTENTIONAL MISUSE [None]
  - MALAISE [None]
  - MIOSIS [None]
  - SOMNOLENCE [None]
  - SUICIDAL IDEATION [None]
  - SUICIDE ATTEMPT [None]
  - TACHYCARDIA [None]
